FAERS Safety Report 6942352-4 (Version None)
Quarter: 2010Q3

REPORT INFORMATION
  Report Type: 
  Country: None (occurrence: None)
  Receive Date: 20100826
  Receipt Date: 20100820
  Transmission Date: 20110219
  Serious: Yes (Hospitalization)
  Sender: FDA-Public Use
  Company Number: BG-BRISTOL-MYERS SQUIBB COMPANY-15238785

PATIENT
  Age: 41 Year
  Sex: Male

DRUGS (2)
  1. ARIPIPRAZOLE [Suspect]
     Indication: SCHIZOPHRENIA
     Dosage: 25MG ON 26JUL2010
     Dates: start: 20100503, end: 20100808
  2. CLONAZEPAM [Concomitant]
     Dates: start: 20100412, end: 20100725

REACTIONS (1)
  - PSYCHOTIC DISORDER [None]
